FAERS Safety Report 9395800 (Version 1)
Quarter: 2013Q3

REPORT INFORMATION
  Report Type: Spontaneous
  Country: US (occurrence: US)
  Receive Date: 20130711
  Receipt Date: 20130711
  Transmission Date: 20140515
  Serious: No
  Sender: FDA-Public Use
  Company Number: US-COVIDIEN/TYCO HEALTHCARE/MALLINCKRODT-T201204313

PATIENT
  Age: 82 Year
  Sex: Female

DRUGS (8)
  1. OXYCODONE/ACETAMINOPHEN [Suspect]
     Indication: PAIN
     Dosage: 1 Q 5 HOURS; TOTAL 4 / DAY
     Dates: start: 20121207
  2. LISINOPRIL [Concomitant]
     Dosage: 10 MG, UNK
  3. PANTOPRAZOLE [Concomitant]
     Dosage: UNK
  4. LASIX                              /00032601/ [Concomitant]
     Dosage: 40 MG, QD
  5. MEGACE [Concomitant]
     Dosage: UNK
  6. NAPROXEN [Concomitant]
     Indication: JOINT DISLOCATION
     Dosage: UNK, PRN
  7. ADDERALL [Concomitant]
     Indication: NARCOLEPSY
     Dosage: 10 MG IN AM; 5 MG IN PM
  8. ADDERALL [Concomitant]
     Indication: ATTENTION DEFICIT/HYPERACTIVITY DISORDER

REACTIONS (3)
  - Agitation [Recovered/Resolved]
  - Nausea [Recovered/Resolved]
  - Product taste abnormal [Unknown]
